FAERS Safety Report 15751542 (Version 2)
Quarter: 2018Q4

REPORT INFORMATION
  Report Type: Spontaneous
  Country: CA (occurrence: CA)
  Receive Date: 20181221
  Receipt Date: 20181227
  Transmission Date: 20190205
  Serious: Yes (Life-Threatening, Hospitalization, Other)
  Sender: FDA-Public Use
  Company Number: CA-PFIZER INC-2017300320

PATIENT
  Age: 60 Year
  Sex: Female

DRUGS (9)
  1. PLAQUENIL [Concomitant]
     Active Substance: HYDROXYCHLOROQUINE SULFATE
     Indication: RHEUMATOID ARTHRITIS
     Dosage: UNK
  2. MORPHINE [Concomitant]
     Active Substance: MORPHINE
     Dosage: UNK, 2X/DAY (2 TABLETS AM AND 1 TABLET PM)
     Dates: start: 201806
  3. TRAZODONE [Concomitant]
     Active Substance: TRAZODONE HYDROCHLORIDE
     Dosage: UNK
  4. LOSEC [Concomitant]
     Active Substance: OMEPRAZOLE
     Dosage: UNK
  5. PREDNISONE. [Concomitant]
     Active Substance: PREDNISONE
  6. HYDROMORPHONE [Concomitant]
     Active Substance: HYDROMORPHONE
     Dosage: UNK
  7. MORPHINE [Concomitant]
     Active Substance: MORPHINE
     Dosage: 1 DF, 2X/DAY (1 TABLET AM AND 1 TABLET PM)
  8. NAPROXEN. [Concomitant]
     Active Substance: NAPROXEN
     Dosage: UNK
  9. XELJANZ [Suspect]
     Active Substance: TOFACITINIB CITRATE
     Indication: RHEUMATOID ARTHRITIS
     Dosage: 5 MG, TWICE DAILY
     Route: 048
     Dates: start: 20170623

REACTIONS (31)
  - Condition aggravated [Recovering/Resolving]
  - Swelling [Recovered/Resolved]
  - Nerve injury [Unknown]
  - Bedridden [Unknown]
  - Fatigue [Not Recovered/Not Resolved]
  - Cachexia [Unknown]
  - Hypotonia [Unknown]
  - Fungal oesophagitis [Recovered/Resolved]
  - Vomiting [Not Recovered/Not Resolved]
  - Asthenia [Unknown]
  - Decubitus ulcer [Unknown]
  - Lung disorder [Unknown]
  - Chest pain [Unknown]
  - Muscle atrophy [Not Recovered/Not Resolved]
  - Pleural effusion [Recovered/Resolved]
  - Immobile [Unknown]
  - Decreased appetite [Recovering/Resolving]
  - Unresponsive to stimuli [Unknown]
  - Renal failure [Recovering/Resolving]
  - Myocardial infarction [Unknown]
  - Throat irritation [Not Recovered/Not Resolved]
  - Weight decreased [Unknown]
  - Muscular weakness [Unknown]
  - Blood glucose decreased [Unknown]
  - Systemic infection [Recovering/Resolving]
  - Oesophageal pain [Not Recovered/Not Resolved]
  - Dyspepsia [Recovered/Resolved]
  - Dysphagia [Recovering/Resolving]
  - Foreign body [Unknown]
  - Dyspnoea [Unknown]
  - Hypotension [Unknown]

NARRATIVE: CASE EVENT DATE: 201805
